FAERS Safety Report 9812684 (Version 1)
Quarter: 2014Q1

REPORT INFORMATION
  Report Type: Spontaneous
  Country: FR (occurrence: FR)
  Receive Date: 20140113
  Receipt Date: 20140113
  Transmission Date: 20141002
  Serious: Yes (Hospitalization)
  Sender: FDA-Public Use
  Company Number: FR-US-EMD SERONO, INC.-7260904

PATIENT
  Age: 22 Year
  Sex: Female

DRUGS (4)
  1. GONAL-F [Suspect]
     Indication: IN VITRO FERTILISATION
     Dosage: FORM STRENGTH: 900 IU/1.5 ML
     Route: 030
     Dates: start: 20130215, end: 20130301
  2. OVITRELLE [Suspect]
     Indication: IN VITRO FERTILISATION
     Route: 058
     Dates: start: 20130302, end: 20130302
  3. LUVERIS [Suspect]
     Indication: IN VITRO FERTILISATION
     Route: 058
     Dates: start: 20130226, end: 20130301
  4. ENANTONE LP [Suspect]
     Indication: IN VITRO FERTILISATION
     Route: 058
     Dates: start: 201302

REACTIONS (3)
  - Haematocrit increased [Recovered/Resolved]
  - Ovarian hyperstimulation syndrome [Recovered/Resolved]
  - Ascites [Recovered/Resolved]
